FAERS Safety Report 24307066 (Version 1)
Quarter: 2024Q3

REPORT INFORMATION
  Report Type: Spontaneous
  Country: JP (occurrence: JP)
  Receive Date: 20240911
  Receipt Date: 20240911
  Transmission Date: 20241017
  Serious: Yes (Other)
  Sender: ELI LILLY AND CO
  Company Number: JP-ELI_LILLY_AND_COMPANY-JP202408018164

PATIENT
  Age: 72 Year
  Sex: Female

DRUGS (3)
  1. NECITUMUMAB [Suspect]
     Active Substance: NECITUMUMAB
     Indication: Squamous cell carcinoma of lung
     Dosage: 800 MG, UNKNOWN
     Route: 041
     Dates: start: 20240808, end: 20240815
  2. GEMCITABINE HYDROCHLORIDE [Suspect]
     Active Substance: GEMCITABINE HYDROCHLORIDE
     Indication: Squamous cell carcinoma of lung
     Dosage: 1125 MG/M2, OTHER
     Route: 041
     Dates: start: 20240808, end: 20240815
  3. CISPLATIN [Suspect]
     Active Substance: CISPLATIN
     Indication: Squamous cell carcinoma of lung
     Dosage: 67.5 MG/M2, OTHER
     Route: 041
     Dates: start: 20240808, end: 20240808

REACTIONS (1)
  - Myelosuppression [Unknown]

NARRATIVE: CASE EVENT DATE: 20240821
